FAERS Safety Report 10686250 (Version 2)
Quarter: 2015Q1

REPORT INFORMATION
  Report Type: Spontaneous
  Country: US (occurrence: US)
  Receive Date: 20141231
  Receipt Date: 20150120
  Transmission Date: 20150720
  Serious: Yes (Other)
  Sender: FDA-Public Use
  Company Number: US-ABBVIE-14P-163-1328052-00

PATIENT
  Sex: Female

DRUGS (3)
  1. LAMOTRIGINE. [Suspect]
     Active Substance: LAMOTRIGINE
     Indication: GENERALISED TONIC-CLONIC SEIZURE
     Route: 065
  2. VALPROIC ACID. [Suspect]
     Active Substance: VALPROIC ACID
     Indication: GENERALISED TONIC-CLONIC SEIZURE
     Route: 065
  3. VALPROATE SEMISODIUM [Suspect]
     Active Substance: DIVALPROEX SODIUM
     Indication: GENERALISED TONIC-CLONIC SEIZURE
     Route: 065

REACTIONS (9)
  - Drug ineffective [Unknown]
  - Developmental delay [Recovering/Resolving]
  - Status epilepticus [Unknown]
  - Abnormal behaviour [Recovering/Resolving]
  - Stubbornness [Unknown]
  - Mood altered [Unknown]
  - Speech disorder developmental [Unknown]
  - Cardiac arrest [Unknown]
  - Fine motor delay [Unknown]
